FAERS Safety Report 4785385-9 (Version None)
Quarter: 2005Q3

REPORT INFORMATION
  Report Type: 
  Country: None (occurrence: None)
  Receive Date: 20050929
  Receipt Date: 20050916
  Transmission Date: 20060218
  Serious: Yes (Hospitalization, Other)
  Sender: FDA-Public Use
  Company Number: 2005119155

PATIENT
  Age: 72 Year
  Sex: Male

DRUGS (13)
  1. NEURONTIN [Suspect]
     Indication: MYALGIA
     Dosage: (300 MG), ORAL
     Route: 048
  2. NEURONTIN [Suspect]
     Indication: MYOSITIS
     Dosage: (300 MG), ORAL
     Route: 048
  3. BACTRIM [Suspect]
     Indication: ILL-DEFINED DISORDER
     Dosage: ORAL
     Route: 048
  4. TARGOCID [Suspect]
     Indication: ILL-DEFINED DISORDER
     Dosage: (200 MG), INTRAVENOUS
     Route: 042
  5. OMEPRAZOLE [Suspect]
     Indication: ILL-DEFINED DISORDER
     Dosage: (20 MG), ORAL
     Route: 048
  6. LOVENOX [Suspect]
     Indication: EMBOLISM
     Dosage: (100 MG) SUBCUTANEOUS
     Route: 058
  7. MORPHINE SULFATE [Suspect]
     Indication: MYALGIA
     Dosage: 60 MG (DAILY), ORAL
     Route: 048
  8. ERYTHROPOIETIN (ERYTHROPOIETIN) [Concomitant]
  9. AMITRIPTYLINE HCL [Concomitant]
  10. FORTUM (CEFTAZIDIME  PENTAHYDRATE) [Concomitant]
  11. LERCANIDIPINE [Concomitant]
  12. CHEMOTHERAPY NOS (CHEMOTHERAPY NOS) [Concomitant]
  13. GRANULOCYTE COLONY STIMULATING FACTOR (GRANULOCYTE COLONY STIMULATING [Concomitant]

REACTIONS (6)
  - CHRONIC LYMPHOCYTIC LEUKAEMIA [None]
  - COMA [None]
  - CONDITION AGGRAVATED [None]
  - CUTANEOUS VASCULITIS [None]
  - SKIN ULCER [None]
  - VASCULITIS NECROTISING [None]
